FAERS Safety Report 13685321 (Version 1)
Quarter: 2017Q2

REPORT INFORMATION
  Report Type: Spontaneous
  Country: US (occurrence: US)
  Receive Date: 20170623
  Receipt Date: 20170623
  Transmission Date: 20170830
  Serious: Yes (Death, Other)
  Sender: FDA-Public Use
  Company Number: US-MYLANLABS-2017M1037797

PATIENT

DRUGS (3)
  1. CLOFARABINE. [Suspect]
     Active Substance: CLOFARABINE
     Indication: LANGERHANS^ CELL HISTIOCYTOSIS
     Dosage: 15 MG/M2
     Route: 065
  2. IDARUBICIN [Suspect]
     Active Substance: IDARUBICIN
     Indication: LANGERHANS^ CELL HISTIOCYTOSIS
     Dosage: 10 MG/M2
     Route: 065
  3. CYTARABINE. [Suspect]
     Active Substance: CYTARABINE
     Indication: LANGERHANS^ CELL HISTIOCYTOSIS
     Dosage: 1 G/M2
     Route: 065

REACTIONS (4)
  - Pancytopenia [Fatal]
  - Pulmonary haemorrhage [Fatal]
  - Sepsis [Fatal]
  - Pneumonitis [Fatal]
